FAERS Safety Report 4531020-4 (Version None)
Quarter: 2004Q4

REPORT INFORMATION
  Report Type: 
  Country: None (occurrence: None)
  Receive Date: 20041215
  Receipt Date: 20041129
  Transmission Date: 20050328
  Serious: Yes (Hospitalization)
  Sender: FDA-Public Use
  Company Number: DSA_25232_2004

PATIENT
  Age: 68 Year
  Sex: Male

DRUGS (4)
  1. MONO-TILDIEM - SLOW RELEASE [Suspect]
     Dosage: 200 MG Q DAY PO
     Route: 048
     Dates: end: 20040728
  2. PREVISCAN [Concomitant]
  3. LASILIX [Concomitant]
  4. CORDARONE [Concomitant]

REACTIONS (5)
  - FALL [None]
  - HEAD INJURY [None]
  - LOSS OF CONSCIOUSNESS [None]
  - SYNCOPE [None]
  - VOMITING [None]
